FAERS Safety Report 23349203 (Version 2)
Quarter: 2024Q1

REPORT INFORMATION
  Report Type: Spontaneous
  Country: US (occurrence: US)
  Receive Date: 20231229
  Receipt Date: 20240102
  Transmission Date: 20240410
  Serious: Yes (Other)
  Sender: FDA-Public Use
  Company Number: US-ABBVIE-5558801

PATIENT
  Age: 36 Year
  Sex: Female
  Weight: 102 kg

DRUGS (6)
  1. INFED [Suspect]
     Active Substance: IRON DEXTRAN
     Indication: Haemorrhage
     Route: 065
     Dates: start: 20231220, end: 20231220
  2. GABAPENTIN [Concomitant]
     Active Substance: GABAPENTIN
     Indication: Nerve injury
  3. VITAMINS [Concomitant]
     Active Substance: VITAMINS
     Indication: Vitamin supplementation
  4. VENOFER [Concomitant]
     Active Substance: IRON SUCROSE
     Indication: Anaemia
  5. BACLOFEN [Concomitant]
     Active Substance: BACLOFEN
     Indication: Muscle relaxant therapy
     Dosage: TIME INTERVAL: AS NECESSARY
  6. LOSARTAN [Concomitant]
     Active Substance: LOSARTAN
     Indication: Blood pressure measurement

REACTIONS (21)
  - Suicidal ideation [Not Recovered/Not Resolved]
  - Renal atrophy [Recovered/Resolved]
  - Uterine spasm [Not Recovered/Not Resolved]
  - Hypertension [Recovered/Resolved]
  - Abdominal distension [Not Recovered/Not Resolved]
  - Throat tightness [Recovered/Resolved]
  - Back pain [Not Recovered/Not Resolved]
  - Loss of consciousness [Recovered/Resolved]
  - Ovarian disorder [Not Recovered/Not Resolved]
  - Dyspnoea [Recovered/Resolved]
  - Heart rate increased [Recovered/Resolved]
  - Abdominal pain upper [Not Recovered/Not Resolved]
  - Hallucination, visual [Not Recovered/Not Resolved]
  - Intermenstrual bleeding [Unknown]
  - Chest discomfort [Recovered/Resolved]
  - Crying [Recovered/Resolved]
  - Feeling hot [Unknown]
  - Dysuria [Unknown]
  - Micturition disorder [Recovered/Resolved]
  - Diarrhoea [Not Recovered/Not Resolved]
  - Swelling face [Recovered/Resolved]

NARRATIVE: CASE EVENT DATE: 20231220
